FAERS Safety Report 13164227 (Version 1)
Quarter: 2017Q1

REPORT INFORMATION
  Report Type: Spontaneous
  Country: FR (occurrence: FR)
  Receive Date: 20170130
  Receipt Date: 20170130
  Transmission Date: 20170428
  Serious: Yes (Hospitalization)
  Sender: FDA-Public Use
  Company Number: FR-PFIZER INC-2017031012

PATIENT
  Age: 67 Year
  Sex: Male

DRUGS (2)
  1. CARBOPLATINE HOSPIRA [Suspect]
     Active Substance: CARBOPLATIN
     Indication: LUNG ADENOCARCINOMA
     Dosage: 580 MG, CYCLIC (ONE SINGLE ADMINISTRATION IN ONE CYCLE)
     Route: 042
     Dates: start: 20161215
  2. ALIMTA [Suspect]
     Active Substance: PEMETREXED DISODIUM
     Indication: LUNG ADENOCARCINOMA
     Dosage: 900 MG, CYCLIC (ONE SINGLE ADMINISTRATION IN ONE CYCLE)
     Route: 042
     Dates: start: 20161215

REACTIONS (2)
  - Folliculitis [Recovered/Resolved]
  - Pruritus [Recovered/Resolved]

NARRATIVE: CASE EVENT DATE: 20161218
